FAERS Safety Report 8925642 (Version 1)
Quarter: 2012Q4

REPORT INFORMATION
  Report Type: 
  Country: FR (occurrence: FR)
  Receive Date: 20121126
  Receipt Date: 20121126
  Transmission Date: 20130627
  Serious: Yes (Death, Other)
  Sender: FDA-Public Use
  Company Number: FR-ELI_LILLY_AND_COMPANY-FR201211003242

PATIENT
  Age: 35 Year
  Sex: Male

DRUGS (4)
  1. PROZAC [Suspect]
     Dosage: 1 DF, qd
     Route: 048
     Dates: start: 201209, end: 20121001
  2. RIVOTRIL [Concomitant]
     Indication: NEURALGIA
     Dosage: 12 Gtt, bid
     Dates: end: 20121001
  3. LIORESAL [Concomitant]
     Dosage: 10 mg, UNK
     Dates: start: 20120905, end: 20121001
  4. LOVENOX [Concomitant]
     Indication: HAEMORRHAGIC STROKE
     Dosage: 1 DF, unknown
     Route: 058
     Dates: start: 20121001

REACTIONS (1)
  - Cerebral haemorrhage [Fatal]
